FAERS Safety Report 24399999 (Version 1)
Quarter: 2024Q4

REPORT INFORMATION
  Report Type: Spontaneous
  Country: JP (occurrence: JP)
  Receive Date: 20241005
  Receipt Date: 20241005
  Transmission Date: 20250115
  Serious: Yes (Death, Other)
  Sender: JAZZ
  Company Number: JP-JAZZ PHARMACEUTICALS-2024-JP-014621

PATIENT

DRUGS (1)
  1. VYXEOS [Suspect]
     Active Substance: CYTARABINE\DAUNORUBICIN
     Indication: Acute myeloid leukaemia
     Dosage: 100 UNITS/PER METRE SQUARE/DAY
     Route: 042
     Dates: start: 20240705, end: 20240708

REACTIONS (3)
  - Acute myeloid leukaemia [Fatal]
  - Myelosuppression [Unknown]
  - Blast cell count increased [Unknown]
